FAERS Safety Report 7534555-5 (Version None)
Quarter: 2011Q2

REPORT INFORMATION
  Report Type: 
  Country: None (occurrence: None)
  Receive Date: 20110609
  Receipt Date: 20090911
  Transmission Date: 20111010
  Serious: Yes (Death)
  Sender: FDA-Public Use
  Company Number: PHHY2009JP01508

PATIENT
  Sex: Female

DRUGS (10)
  1. CYCLOPHOSPHAMIDE [Concomitant]
     Dosage: 300 MG, UNK
     Dates: start: 20080508, end: 20080708
  2. NEU-UP [Concomitant]
     Dosage: 100 UG, UNK
     Dates: start: 20071023, end: 20080523
  3. CGP 42446 [Suspect]
     Indication: BREAST CANCER
     Dosage: 4 MG, UNK
     Route: 042
     Dates: start: 20070820, end: 20080624
  4. EPIRUBICIN HYDROCHLORIDE [Concomitant]
     Dosage: 50 MG, UNK
     Dates: start: 20080508, end: 20080708
  5. NEUTROGIN [Concomitant]
     Dosage: 50 UG, UNK
     Dates: start: 20071023, end: 20080523
  6. DECADRON [Concomitant]
     Dosage: 8 MG, UNK
     Dates: start: 20070828, end: 20080708
  7. AROMASIN [Concomitant]
     Dosage: 25 MG, UNK
     Route: 048
     Dates: start: 20070820, end: 20080427
  8. NAVELBINE [Concomitant]
     Dosage: 33 MG, UNK
     Dates: start: 20070828, end: 20080408
  9. RAMELTEON [Concomitant]
     Dosage: 0.3 MG, UNK
     Dates: start: 20080508, end: 20080708
  10. FEMARA [Concomitant]
     Dosage: 2.5 MG, UNK
     Route: 048
     Dates: start: 20080427, end: 20080820

REACTIONS (5)
  - BLOOD UREA INCREASED [None]
  - WHITE BLOOD CELL COUNT DECREASED [None]
  - DEATH [None]
  - PLEURAL EFFUSION [None]
  - CANCER PAIN [None]
